FAERS Safety Report 10231804 (Version 1)
Quarter: 2014Q2

REPORT INFORMATION
  Report Type: Spontaneous
  Country: CN (occurrence: CN)
  Receive Date: 20140612
  Receipt Date: 20140612
  Transmission Date: 20141212
  Serious: Yes (Hospitalization, Disabling, Other)
  Sender: FDA-Public Use
  Company Number: CN-GILEAD-2014-0104870

PATIENT
  Age: 61 Year
  Sex: Female
  Weight: 40 kg

DRUGS (3)
  1. HEPSERA [Suspect]
     Indication: HEPATITIS B
     Dosage: 10MG PER DAY
     Route: 048
     Dates: start: 20100820, end: 20130903
  2. ENTECAVIR [Concomitant]
     Indication: HEPATITIS B
     Dosage: UNK
  3. POTASSIUM [Concomitant]
     Indication: BLOOD POTASSIUM DECREASED
     Dosage: UNK

REACTIONS (4)
  - Osteoporosis [Recovering/Resolving]
  - Osteomalacia [Recovering/Resolving]
  - Renal tubular acidosis [Recovering/Resolving]
  - Blood phosphorus decreased [Recovering/Resolving]
